FAERS Safety Report 11310013 (Version 3)
Quarter: 2015Q3

REPORT INFORMATION
  Report Type: Spontaneous
  Country: US (occurrence: US)
  Receive Date: 20150724
  Receipt Date: 20150828
  Transmission Date: 20151125
  Serious: Yes (Death, Hospitalization)
  Sender: FDA-Public Use
  Company Number: US-INCYTE CORPORATION-2015IN003542

PATIENT
  Age: 56 Year
  Sex: Male
  Weight: 82.99 kg

DRUGS (8)
  1. JAKAFI [Suspect]
     Active Substance: RUXOLITINIB
     Indication: MYELOFIBROSIS
     Dosage: 10 MG, BID
     Route: 048
     Dates: start: 20140529, end: 20141022
  2. JAKAFI [Suspect]
     Active Substance: RUXOLITINIB
     Dosage: 15 MG, BID
     Route: 048
     Dates: start: 20150101, end: 20150701
  3. VALACYCLOVIR HYDROCHLORIDE. [Concomitant]
     Active Substance: VALACYCLOVIR HYDROCHLORIDE
     Dosage: 500 MG, QD
  4. LEVOTHYROXINE SODIUM. [Concomitant]
     Active Substance: LEVOTHYROXINE SODIUM
     Dosage: 75 MCG, QD
  5. FOLIC ACID. [Concomitant]
     Active Substance: FOLIC ACID
     Dosage: 1 MG, QD
  6. EXJADE [Concomitant]
     Active Substance: DEFERASIROX
     Dosage: 500 MG, QD SOLUBLE 1 TABLET DISSSOLVED IN 8 OZ LIQUID
  7. MECLIZINE [Concomitant]
     Active Substance: MECLIZINE\MECLIZINE HYDROCHLORIDE
     Dosage: 25 MG, QD
  8. ALLOPURINOL. [Concomitant]
     Active Substance: ALLOPURINOL
     Dosage: 300 MG, QD

REACTIONS (14)
  - Renal failure [Unknown]
  - Subdural haematoma [Unknown]
  - Gout [Unknown]
  - Myeloblast count increased [Unknown]
  - Mucosal inflammation [Unknown]
  - Pancreatitis [Unknown]
  - Splenomegaly [Unknown]
  - Acute myeloid leukaemia [Fatal]
  - Escherichia bacteraemia [Unknown]
  - Cardiac failure congestive [Unknown]
  - Blister [Unknown]
  - Febrile neutropenia [Unknown]
  - Tumour lysis syndrome [Unknown]
  - Staphylococcal bacteraemia [Unknown]

NARRATIVE: CASE EVENT DATE: 2014
